FAERS Safety Report 18390328 (Version 1)
Quarter: 2020Q4

REPORT INFORMATION
  Report Type: Spontaneous
  Country: CH (occurrence: CH)
  Receive Date: 20201015
  Receipt Date: 20201015
  Transmission Date: 20210114
  Serious: Yes (Other)
  Sender: FDA-Public Use
  Company Number: CH-PFIZER INC-2020397758

PATIENT
  Age: 83 Year
  Sex: Female

DRUGS (5)
  1. ATORVASTATIN PFIZER [Concomitant]
     Active Substance: ATORVASTATIN
  2. XELJANZ [Suspect]
     Active Substance: TOFACITINIB CITRATE
     Indication: RHEUMATOID ARTHRITIS
     Dosage: 5 MG, 2X/DAY
     Route: 048
     Dates: start: 201702
  3. VALSARTAN SANDOZ [Concomitant]
     Active Substance: VALSARTAN
  4. ASPIRIN CARDIO [Concomitant]
     Active Substance: ASPIRIN
  5. PANTOPRAZOL SANDOZ [Concomitant]
     Active Substance: PANTOPRAZOLE SODIUM

REACTIONS (1)
  - Diffuse large B-cell lymphoma stage II [Unknown]

NARRATIVE: CASE EVENT DATE: 202004
